FAERS Safety Report 8866373 (Version 1)
Quarter: 2012Q4

REPORT INFORMATION
  Report Type: Report from Study
  Country: DE (occurrence: DE)
  Receive Date: 20121025
  Receipt Date: 20121025
  Transmission Date: 20130627
  Serious: Yes (Hospitalization)
  Sender: FDA-Public Use
  Company Number: DE-ACTELION-A-US2012-73164

PATIENT
  Age: 52 Year
  Sex: Male

DRUGS (4)
  1. VENTAVIS [Suspect]
     Indication: PULMONARY ARTERIAL HYPERTENSION
     Dosage: 5 mcg, qid
     Route: 055
     Dates: start: 20101109, end: 20111017
  2. VENTAVIS [Suspect]
     Dosage: 5 mcg, qod
     Route: 055
     Dates: end: 201112
  3. VENTAVIS [Suspect]
     Dosage: very irregularly; dose UNK
     Route: 055
     Dates: start: 201112, end: 201202
  4. TRACLEER [Concomitant]

REACTIONS (4)
  - Pulmonary oedema [Not Recovered/Not Resolved]
  - Renal failure [Not Recovered/Not Resolved]
  - Pneumonia [Not Recovered/Not Resolved]
  - Oedema peripheral [Unknown]
